FAERS Safety Report 5415486-3 (Version None)
Quarter: 2007Q3

REPORT INFORMATION
  Report Type: 
  Country: None (occurrence: None)
  Receive Date: 20070815
  Receipt Date: 20070803
  Transmission Date: 20080115
  Serious: Yes (Other)
  Sender: FDA-Public Use
  Company Number: GB-ROCHE-511186

PATIENT
  Age: 39 Year
  Sex: Female
  Weight: 82.6 kg

DRUGS (1)
  1. XENICAL [Suspect]
     Indication: OBESITY
     Route: 065
     Dates: start: 20070418, end: 20070601

REACTIONS (4)
  - FATIGUE [None]
  - FLATULENCE [None]
  - GASTROINTESTINAL INFLAMMATION [None]
  - RECTAL HAEMORRHAGE [None]
